FAERS Safety Report 19486768 (Version 1)
Quarter: 2021Q3

REPORT INFORMATION
  Report Type: Spontaneous
  Country: US (occurrence: US)
  Receive Date: 20210701
  Receipt Date: 20210701
  Transmission Date: 20211014
  Serious: No
  Sender: FDA-Public Use
  Company Number: None

PATIENT
  Age: 38 Year
  Sex: Female
  Weight: 69.75 kg

DRUGS (2)
  1. OMEPRAZOLE. [Concomitant]
     Active Substance: OMEPRAZOLE
  2. ETHINYL ESTRADIOL 0.02 MG / LEVONORGESTREL 0.1 MG [Suspect]
     Active Substance: ETHINYL ESTRADIOL\LEVONORGESTREL
     Indication: CONTRACEPTION
     Dosage: ?          QUANTITY:90 DF DOSAGE FORM;?
     Route: 048
     Dates: start: 20191215, end: 20200214

REACTIONS (3)
  - Expired product administered [None]
  - Vaginal haemorrhage [None]
  - Therapeutic product effect decreased [None]

NARRATIVE: CASE EVENT DATE: 20200214
